FAERS Safety Report 23263334 (Version 1)
Quarter: 2023Q4

REPORT INFORMATION
  Report Type: Spontaneous
  Country: US (occurrence: None)
  Receive Date: 20231204
  Receipt Date: 20231204
  Transmission Date: 20240110
  Serious: Yes (Hospitalization)
  Sender: FDA-Public Use
  Company Number: None

PATIENT
  Age: 63 Year
  Sex: Male
  Weight: 106.6 kg

DRUGS (9)
  1. MYCOPHENOLIC ACID [Suspect]
     Active Substance: MYCOPHENOLIC ACID
     Indication: Renal transplant
     Dosage: FREQUENCY : TWICE A DAY;?
     Route: 048
     Dates: start: 20230622
  2. Envarsus XR 0.75 [Concomitant]
     Dates: start: 20230619
  3. Ciclopirox 8% Nail Laxq [Concomitant]
     Dates: start: 20231018
  4. FAMOTIDINE [Concomitant]
     Active Substance: FAMOTIDINE
     Dates: start: 20230619
  5. VITAMIN D2 [Concomitant]
     Active Substance: ERGOCALCIFEROL
  6. Bactrim 400-80mg [Concomitant]
     Dates: start: 20230619
  7. PREDNISONE [Concomitant]
     Active Substance: PREDNISONE
     Dates: start: 20230619
  8. Nifedipine 30mg ER (XL/OSM) Tab [Concomitant]
     Dates: start: 20230823
  9. Metoprolol Tartrate 100mg Tab [Concomitant]
     Dates: start: 20230821

REACTIONS (2)
  - Palpitations [None]
  - Sleep apnoea syndrome [None]

NARRATIVE: CASE EVENT DATE: 20231116
